FAERS Safety Report 18543895 (Version 1)
Quarter: 2020Q4

REPORT INFORMATION
  Report Type: Report from Study
  Country: US (occurrence: US)
  Receive Date: 20201125
  Receipt Date: 20201125
  Transmission Date: 20210114
  Serious: No
  Sender: FDA-Public Use
  Company Number: US-BIOVITRUM-2020US4372

PATIENT
  Age: 62 Year
  Sex: Female

DRUGS (1)
  1. KINERET [Suspect]
     Active Substance: ANAKINRA
     Indication: PERICARDIAL DISEASE
     Route: 058
     Dates: start: 20190426

REACTIONS (5)
  - Injection site pain [Unknown]
  - Intentional product misuse [Unknown]
  - Weight increased [Unknown]
  - Off label use [Not Recovered/Not Resolved]
  - Blood cholesterol increased [Unknown]

NARRATIVE: CASE EVENT DATE: 20190426
